FAERS Safety Report 9445765 (Version 2)
Quarter: 2013Q4

REPORT INFORMATION
  Report Type: Spontaneous
  Country: US (occurrence: US)
  Receive Date: 20130807
  Receipt Date: 20131023
  Transmission Date: 20140711
  Serious: Yes (Hospitalization)
  Sender: FDA-Public Use
  Company Number: US-UCBSA-068246

PATIENT
  Age: 36 Year
  Sex: Female

DRUGS (2)
  1. CIMZIA [Suspect]
     Indication: CROHN^S DISEASE
     Dosage: EXP DATE: SEP-15
     Dates: start: 20120507
  2. CIMZIA [Suspect]
     Indication: CROHN^S DISEASE

REACTIONS (5)
  - Intestinal stenosis [Recovered/Resolved]
  - Abscess [Recovered/Resolved]
  - Abdominal pain [Recovered/Resolved]
  - Dyspnoea [Unknown]
  - Inappropriate schedule of drug administration [Unknown]
